FAERS Safety Report 7136981-5 (Version None)
Quarter: 2010Q4

REPORT INFORMATION
  Report Type: 
  Country: None (occurrence: None)
  Receive Date: 20101206
  Receipt Date: 20060603
  Transmission Date: 20110411
  Serious: Yes (Death)
  Sender: FDA-Public Use
  Company Number: US-ACTELION-A-US2003-02654

PATIENT

DRUGS (13)
  1. TRACLEER [Suspect]
     Indication: PULMONARY ARTERIAL HYPERTENSION
     Dosage: 62.5 MG, BID
     Route: 048
     Dates: end: 20030115
  2. TRACLEER [Suspect]
     Dosage: 125 MG, BID
     Route: 048
     Dates: start: 20030116, end: 20030203
  3. TRACLEER [Suspect]
     Dosage: 62.5 MG, BID
     Route: 048
     Dates: start: 20030204
  4. LANOXIN [Concomitant]
  5. LASIX [Concomitant]
  6. RESTORIL [Concomitant]
     Dosage: 15 MG, QPM
  7. KLOR-CON [Concomitant]
     Dosage: 20 MEQ, QD
  8. COREG [Concomitant]
     Dosage: 3.125 MG, BID
  9. COUMADIN [Concomitant]
     Dosage: 2.5 MG, QD
  10. MILRINONE [Concomitant]
     Dosage: .5 KG, PER MIN
     Route: 042
  11. TRICOR [Concomitant]
     Dosage: 160 MG, QD
  12. GLUCOTROL [Concomitant]
     Dosage: 10 MG, BID
  13. MULTIVIT [Concomitant]
     Dosage: UNK, QD

REACTIONS (7)
  - ABDOMINAL DISTENSION [None]
  - DEATH [None]
  - EYE PAIN [None]
  - FATIGUE [None]
  - OEDEMA [None]
  - OEDEMA PERIPHERAL [None]
  - SOMNOLENCE [None]
